FAERS Safety Report 6583369-1 (Version None)
Quarter: 2010Q1

REPORT INFORMATION
  Report Type: 
  Country: None (occurrence: None)
  Receive Date: 20100216
  Receipt Date: 20100205
  Transmission Date: 20100710
  Serious: Yes (Other)
  Sender: FDA-Public Use
  Company Number: GXKR2010NO01580

PATIENT

DRUGS (1)
  1. METFORMIN (NGX) [Suspect]
     Indication: POLYCYSTIC OVARIES
     Dosage: 500 MG, TID
     Route: 048

REACTIONS (2)
  - DRUG EXPOSURE DURING PREGNANCY [None]
  - INTRA-UTERINE DEATH [None]
